FAERS Safety Report 9789308 (Version 2)
Quarter: 2014Q1

REPORT INFORMATION
  Report Type: Report from Study
  Country: US (occurrence: US)
  Receive Date: 20131231
  Receipt Date: 20140106
  Transmission Date: 20141002
  Serious: Yes (Hospitalization)
  Sender: FDA-Public Use
  Company Number: US-BAXTER-2013BAX052882

PATIENT
  Age: 48 Year
  Sex: Female
  Weight: 43.58 kg

DRUGS (2)
  1. ARALAST NP [Suspect]
     Indication: ALPHA-1 ANTI-TRYPSIN DEFICIENCY
     Dosage: X 2, VIA PORT
     Route: 042
     Dates: start: 201010
  2. ARALAST NP [Suspect]
     Dosage: VIA PORT
     Route: 042
     Dates: start: 201010

REACTIONS (6)
  - Myocardial infarction [Recovered/Resolved]
  - Pneumonia [Recovering/Resolving]
  - Pneumothorax [Recovered/Resolved]
  - Weight decreased [Recovering/Resolving]
  - Dysphagia [Recovering/Resolving]
  - Malaise [Unknown]
